FAERS Safety Report 7678090-2 (Version None)
Quarter: 2011Q3

REPORT INFORMATION
  Report Type: 
  Country: None (occurrence: None)
  Receive Date: 20110811
  Receipt Date: 20110801
  Transmission Date: 20111222
  Serious: Yes (Hospitalization)
  Sender: FDA-Public Use
  Company Number: US-JNJFOC-20090804150

PATIENT
  Sex: Female
  Weight: 53.1 kg

DRUGS (7)
  1. PROTONIX [Concomitant]
  2. PREDNISONE [Concomitant]
     Indication: CROHN'S DISEASE
  3. REMICADE [Suspect]
     Dosage: TOTAL OF 8 INFUSIONS
     Route: 042
     Dates: start: 20050303
  4. MERCAPTOPURINE [Concomitant]
     Indication: CROHN'S DISEASE
  5. BUDESONIDE [Concomitant]
     Indication: CROHN'S DISEASE
  6. MESALAMINE [Concomitant]
     Indication: CROHN'S DISEASE
  7. REMICADE [Suspect]
     Indication: CROHN'S DISEASE
     Route: 042
     Dates: start: 20040603

REACTIONS (1)
  - CROHN'S DISEASE [None]
